FAERS Safety Report 12856795 (Version 1)
Quarter: 2016Q4

REPORT INFORMATION
  Report Type: Spontaneous
  Country: US (occurrence: US)
  Receive Date: 20161018
  Receipt Date: 20161018
  Transmission Date: 20170207
  Serious: No
  Sender: FDA-Public Use
  Company Number: US-PFIZER INC-2016476800

PATIENT
  Sex: Female

DRUGS (1)
  1. CALAN SR [Suspect]
     Active Substance: VERAPAMIL HYDROCHLORIDE
     Dosage: 240MG, TAKES ONE AND A HALF TABLETS A DAY/360MG A DAY

REACTIONS (5)
  - Palpitations [Unknown]
  - Anxiety [Unknown]
  - Hyperventilation [Unknown]
  - Discomfort [Unknown]
  - Feeling abnormal [Unknown]
